FAERS Safety Report 19312073 (Version 1)
Quarter: 2021Q2

REPORT INFORMATION
  Report Type: Spontaneous
  Country: IT (occurrence: IT)
  Receive Date: 20210527
  Receipt Date: 20210527
  Transmission Date: 20210717
  Serious: Yes (Life-Threatening, Other)
  Sender: FDA-Public Use
  Company Number: IT-MTPC-MTDA2021-0012900

PATIENT
  Age: 71 Year
  Sex: Female

DRUGS (1)
  1. RILUZOLE. [Suspect]
     Active Substance: RILUZOLE
     Indication: AMYOTROPHIC LATERAL SCLEROSIS
     Dosage: 50 MILLIGRAM, BID
     Route: 048

REACTIONS (4)
  - Gallbladder enlargement [Recovered/Resolved]
  - Diarrhoea [Recovered/Resolved]
  - Pancreatitis necrotising [Recovered/Resolved]
  - Cholelithiasis [Recovered/Resolved]
